FAERS Safety Report 18156897 (Version 2)
Quarter: 2020Q3

REPORT INFORMATION
  Report Type: Spontaneous
  Country: FR (occurrence: FR)
  Receive Date: 20200817
  Receipt Date: 20200929
  Transmission Date: 20201103
  Serious: Yes (Hospitalization)
  Sender: FDA-Public Use
  Company Number: NVSC2020FR222621

PATIENT
  Age: 61 Year
  Sex: Male
  Weight: 78 kg

DRUGS (4)
  1. PREDNISONE. [Suspect]
     Active Substance: PREDNISONE
     Indication: HORMONE-REFRACTORY PROSTATE CANCER
     Dosage: 10 MG, QD
     Route: 048
     Dates: start: 20200210
  2. CABAZITAXEL [Suspect]
     Active Substance: CABAZITAXEL
     Indication: HORMONE-REFRACTORY PROSTATE CANCER
     Dosage: 25 MG/M2, Q3W
     Route: 042
     Dates: start: 20200210, end: 20200210
  3. LENOGRASTIM [Suspect]
     Active Substance: LENOGRASTIM
     Indication: HORMONE-REFRACTORY PROSTATE CANCER
     Dosage: DAY 3 TO DAY 7 (5 DAYS) AFTER EVERY ADMINISTRATION OF CABAZITAXEL
     Route: 065
  4. CABAZITAXEL [Suspect]
     Active Substance: CABAZITAXEL
     Dosage: 25 MG/M2, Q3W
     Route: 042
     Dates: start: 20200708, end: 20200708

REACTIONS (1)
  - Haematuria [Recovered/Resolved]

NARRATIVE: CASE EVENT DATE: 20200728
